FAERS Safety Report 11201596 (Version 1)
Quarter: 2015Q2

REPORT INFORMATION
  Report Type: Spontaneous
  Country: US (occurrence: US)
  Receive Date: 20150619
  Receipt Date: 20150619
  Transmission Date: 20150821
  Serious: Yes (Other)
  Sender: FDA-Public Use
  Company Number: US-SA-2015SA084706

PATIENT
  Age: 85 Year
  Sex: Male

DRUGS (6)
  1. LANTUS [Suspect]
     Active Substance: INSULIN GLARGINE
     Indication: TYPE 2 DIABETES MELLITUS
     Dosage: DOSE:50 UNIT(S)
     Route: 065
  2. LANTUS [Suspect]
     Active Substance: INSULIN GLARGINE
     Indication: TYPE 2 DIABETES MELLITUS
     Route: 065
  3. NOVOLOG [Suspect]
     Active Substance: INSULIN ASPART
     Indication: TYPE 2 DIABETES MELLITUS
     Dosage: 10-15 UNITS BEFORE MEALS AS NEEDED
     Route: 065
  4. ENOXAPARIN [Interacting]
     Active Substance: ENOXAPARIN
     Indication: INTERNATIONAL NORMALISED RATIO ABNORMAL
     Dosage: ENOXAPARIN 60 MG ONCE A DAY ALTERNATING WITH TWICE A DAY
     Route: 065
  5. WARFARIN [Suspect]
     Active Substance: WARFARIN
     Route: 065
  6. WARFARIN [Suspect]
     Active Substance: WARFARIN
     Route: 065

REACTIONS (7)
  - Loss of consciousness [Recovered/Resolved]
  - Drug interaction [Unknown]
  - Inguinal hernia repair [Unknown]
  - Blood glucose decreased [Recovered/Resolved]
  - Sleep disorder [Unknown]
  - Abnormal behaviour [Recovered/Resolved]
  - Blood glucose decreased [Recovered/Resolved]

NARRATIVE: CASE EVENT DATE: 2013
